FAERS Safety Report 5736350-6 (Version None)
Quarter: 2008Q2

REPORT INFORMATION
  Report Type: 
  Country: None (occurrence: None)
  Receive Date: 20080509
  Receipt Date: 20080509
  Transmission Date: 20081010
  Serious: No
  Sender: FDA-Public Use
  Company Number: None

PATIENT
  Age: 36 Year
  Sex: Female
  Weight: 59.8748 kg

DRUGS (1)
  1. CREST PROHEALTH RINSE [Suspect]
     Dosage: 1 OUNCE  2X DAILY  DENTAL
     Route: 004
     Dates: start: 20071101, end: 20080507

REACTIONS (2)
  - ANGER [None]
  - TOOTH DISCOLOURATION [None]
